FAERS Safety Report 12636040 (Version 3)
Quarter: 2016Q3

REPORT INFORMATION
  Report Type: Spontaneous
  Country: US (occurrence: US)
  Receive Date: 20160809
  Receipt Date: 20160914
  Transmission Date: 20161109
  Serious: No
  Sender: FDA-Public Use
  Company Number: US-PFIZER INC-2016374577

PATIENT
  Age: 56 Year
  Sex: Female
  Weight: 87.9 kg

DRUGS (8)
  1. VITAMIN D3 [Concomitant]
     Active Substance: CHOLECALCIFEROL
     Indication: RHEUMATOID ARTHRITIS
     Dosage: 4000 IU, 1X/DAY
  2. FOLIC ACID. [Concomitant]
     Active Substance: FOLIC ACID
     Indication: RHEUMATOID ARTHRITIS
     Dosage: 1 MG, 1X/DAY
  3. OTREXUP [Concomitant]
     Active Substance: METHOTREXATE
     Dosage: UNK, WEEKLY (15MG/0.4ML, ONCE A WEEK)
     Dates: start: 20160830
  4. XELJANZ XR [Suspect]
     Active Substance: TOFACITINIB CITRATE
     Indication: RHEUMATOID ARTHRITIS
     Dosage: 11 MG, DAILY
     Route: 048
     Dates: start: 20160630
  5. METHADONE [Concomitant]
     Active Substance: METHADONE HYDROCHLORIDE
     Indication: HEADACHE
     Dosage: 10 MG, 3X/DAY
  6. CLARITIN [Concomitant]
     Active Substance: LORATADINE
     Indication: HYPERSENSITIVITY
     Dosage: 10 MG, 1X/DAY
  7. TURMERIC [Concomitant]
     Active Substance: TURMERIC
     Indication: PHYTOTHERAPY
     Dosage: 1 DF, 1X/DAY
  8. PERCOCET [Concomitant]
     Active Substance: ACETAMINOPHEN\OXYCODONE HYDROCHLORIDE
     Indication: NEUROPATHY PERIPHERAL
     Dosage: UNK, 2X/DAY [OXYCODONE HYDROCHLORIDE: 10] / [PARACETAMOL: 325]

REACTIONS (3)
  - Drug ineffective [Unknown]
  - Chills [Unknown]
  - Condition aggravated [Recovering/Resolving]

NARRATIVE: CASE EVENT DATE: 20160830
